FAERS Safety Report 5482692-1 (Version None)
Quarter: 2007Q4

REPORT INFORMATION
  Report Type: 
  Country: None (occurrence: None)
  Receive Date: 20071011
  Receipt Date: 20070928
  Transmission Date: 20080405
  Serious: Yes (Hospitalization, Other)
  Sender: FDA-Public Use
  Company Number: US-PFIZER INC-2007044022

PATIENT
  Sex: Female

DRUGS (1)
  1. CELECOXIB [Suspect]
     Indication: BACK DISORDER

REACTIONS (5)
  - ARTHROPATHY [None]
  - CEREBROVASCULAR ACCIDENT [None]
  - DEVICE RELATED INFECTION [None]
  - DIABETES MELLITUS [None]
  - MYOCARDIAL INFARCTION [None]
